FAERS Safety Report 23204776 (Version 1)
Quarter: 2023Q4

REPORT INFORMATION
  Report Type: Spontaneous
  Country: US (occurrence: US)
  Receive Date: 20231120
  Receipt Date: 20231120
  Transmission Date: 20240109
  Serious: Yes (Hospitalization, Congenital Anomaly, Other)
  Sender: FDA-Public Use
  Company Number: US-ViiV Healthcare Limited-US2023GSK158633

PATIENT

DRUGS (2)
  1. TRIUMEQ [Suspect]
     Active Substance: ABACAVIR SULFATE\DOLUTEGRAVIR SODIUM\LAMIVUDINE
     Indication: HIV infection
     Dosage: UNK
     Route: 064
  2. TRENBOLONE [Suspect]
     Active Substance: TRENBOLONE
     Indication: Muscle building therapy
     Dosage: 200 MG
     Route: 064

REACTIONS (3)
  - Genitalia external ambiguous [Unknown]
  - Congenital genital malformation female [Unknown]
  - Foetal exposure during pregnancy [Unknown]
